FAERS Safety Report 23494769 (Version 2)
Quarter: 2024Q1

REPORT INFORMATION
  Report Type: Spontaneous
  Country: FI (occurrence: FI)
  Receive Date: 20240207
  Receipt Date: 20240221
  Transmission Date: 20240409
  Serious: Yes (Other)
  Sender: FDA-Public Use
  Company Number: FI-DUCHESNAY-2024FI000050

PATIENT

DRUGS (4)
  1. DOXYLAMINE SUCCINATE\PYRIDOXINE HYDROCHLORIDE [Suspect]
     Active Substance: DOXYLAMINE SUCCINATE\PYRIDOXINE HYDROCHLORIDE
     Indication: Hyperemesis gravidarum
     Dosage: 1/EVENING
     Route: 048
     Dates: start: 20231026, end: 2023
  2. DOXYLAMINE SUCCINATE\PYRIDOXINE HYDROCHLORIDE [Suspect]
     Active Substance: DOXYLAMINE SUCCINATE\PYRIDOXINE HYDROCHLORIDE
     Dosage: 2/EVENING
     Route: 048
     Dates: start: 2023, end: 2023
  3. DOXYLAMINE SUCCINATE\PYRIDOXINE HYDROCHLORIDE [Suspect]
     Active Substance: DOXYLAMINE SUCCINATE\PYRIDOXINE HYDROCHLORIDE
     Dosage: 1+1+2
     Route: 048
     Dates: start: 20231101, end: 20231107
  4. PRIMPERAN [Concomitant]
     Active Substance: METOCLOPRAMIDE HYDROCHLORIDE
     Indication: Morning sickness
     Dosage: UNK
     Dates: start: 20231026, end: 20231027

REACTIONS (2)
  - Therapeutic product effect decreased [Unknown]
  - Drug ineffective for unapproved indication [Unknown]
